FAERS Safety Report 6251206-0 (Version None)
Quarter: 2009Q2

REPORT INFORMATION
  Report Type: 
  Country: None (occurrence: None)
  Receive Date: 20090626
  Receipt Date: 20090612
  Transmission Date: 20091009
  Serious: Yes (Death, Hospitalization)
  Sender: FDA-Public Use
  Company Number: 2009001682

PATIENT
  Age: 67 Year
  Sex: Male
  Weight: 69 kg

DRUGS (8)
  1. ERLOTINIB (ERLOTINIB) (TABLET) (ERLOTINIB) [Suspect]
     Indication: NON-SMALL CELL LUNG CANCER
     Dosage: 150 MG, QD, ORAL
     Route: 048
     Dates: start: 20090205, end: 20090515
  2. CP-751, 871 [Suspect]
     Indication: NON-SMALL CELL LUNG CANCER
     Dosage: 20 MG/KG, Q3W, INTRAVENOUS
     Route: 042
     Dates: start: 20090205, end: 20090430
  3. NOVONORM (REPAGLINIDE) [Concomitant]
  4. LASIX [Concomitant]
  5. TORADOL [Concomitant]
  6. DIFLUCAN [Concomitant]
  7. CO-EFFERALGAN (PANADEINE CO) [Concomitant]
  8. PEPTAZOL (PANTOPRAZOLE SODIUM) [Concomitant]

REACTIONS (3)
  - HYPERGLYCAEMIA [None]
  - LEUKOCYTOSIS [None]
  - RESPIRATORY FAILURE [None]
